FAERS Safety Report 21912689 (Version 1)
Quarter: 2023Q1

REPORT INFORMATION
  Report Type: Spontaneous
  Country: US (occurrence: US)
  Receive Date: 20230125
  Receipt Date: 20230125
  Transmission Date: 20230417
  Serious: No
  Sender: FDA-Public Use
  Company Number: US-ALLERGAN-2236455US

PATIENT
  Sex: Female

DRUGS (2)
  1. BOTOX [Suspect]
     Active Substance: ONABOTULINUMTOXINA
     Indication: Headache
     Dosage: UNK, SINGLE
     Dates: start: 20210601, end: 20210601
  2. QULIPTA [Concomitant]
     Active Substance: ATOGEPANT
     Indication: Headache
     Dosage: UNK
     Dates: start: 20221101

REACTIONS (2)
  - Injection site pain [Recovering/Resolving]
  - Therapeutic product effect decreased [Unknown]
